FAERS Safety Report 4324233-8 (Version None)
Quarter: 2004Q1

REPORT INFORMATION
  Report Type: 
  Country: None (occurrence: None)
  Receive Date: 20040326
  Receipt Date: 20040112
  Transmission Date: 20041129
  Serious: No
  Sender: FDA-Public Use
  Company Number: US-GLAXOSMITHKLINE-A0492571A

PATIENT
  Age: 78 Year
  Sex: Female

DRUGS (8)
  1. ADVAIR DISKUS 100/50 [Suspect]
     Indication: ASTHMA
     Dosage: 1PUFF TWICE PER DAY
     Route: 055
     Dates: end: 20040109
  2. THEO-DUR [Concomitant]
  3. LOTENSIN [Concomitant]
  4. CARDIZEM [Concomitant]
  5. ASPIRIN [Concomitant]
  6. EVISTA [Concomitant]
  7. WATER PILL [Concomitant]
  8. UNSPECIFIED MEDICATION [Concomitant]
     Indication: HERNIA
     Route: 065

REACTIONS (4)
  - ANXIETY [None]
  - COLONIC POLYP [None]
  - DIARRHOEA [None]
  - DRY MOUTH [None]
